FAERS Safety Report 7555807-9 (Version None)
Quarter: 2011Q2

REPORT INFORMATION
  Report Type: 
  Country: None (occurrence: None)
  Receive Date: 20110618
  Receipt Date: 20110322
  Transmission Date: 20111010
  Serious: Yes (Other)
  Sender: FDA-Public Use
  Company Number: US-BAYER-2011-022993

PATIENT
  Age: 72 Year
  Sex: Male

DRUGS (3)
  1. MEGACE [Concomitant]
  2. DRUG USED IN DIABETES [Concomitant]
     Indication: DIABETES MELLITUS
  3. SORAFENIB (RAF KINASE INHIBITOR) [Suspect]
     Indication: HEPATIC NEOPLASM MALIGNANT
     Dosage: 200 MG, BID
     Route: 048
     Dates: start: 20110309

REACTIONS (4)
  - RASH [None]
  - TONGUE BLISTERING [None]
  - BLOOD GLUCOSE DECREASED [None]
  - STOMATITIS [None]
